FAERS Safety Report 24722649 (Version 2)
Quarter: 2025Q3

REPORT INFORMATION
  Report Type: Spontaneous
  Country: JP (occurrence: JP)
  Receive Date: 20241211
  Receipt Date: 20250809
  Transmission Date: 20251021
  Serious: Yes (Other)
  Sender: ALEXION PHARMACEUTICALS
  Company Number: JP-ASTRAZENECA-240139123_064320_P_1

PATIENT
  Age: 87 Year
  Sex: Male

DRUGS (2)
  1. ANDEXXA [Suspect]
     Active Substance: ANDEXANET ALFA
     Indication: Haemorrhage
  2. ANTICOAGULANT CITRATE DEXTROSE SOLUTION (ACD) NOS [Concomitant]
     Active Substance: CITRIC ACID MONOHYDRATE\DEXTROSE\SODIUM CITRATE

REACTIONS (1)
  - Haemorrhagic infarction [Unknown]
